FAERS Safety Report 12177223 (Version 1)
Quarter: 2016Q1

REPORT INFORMATION
  Report Type: Spontaneous
  Country: US (occurrence: US)
  Receive Date: 20160314
  Receipt Date: 20160314
  Transmission Date: 20160526
  Serious: No
  Sender: FDA-Public Use
  Company Number: US-AMGEN-USASP2016029598

PATIENT
  Sex: Female

DRUGS (1)
  1. ENBREL [Suspect]
     Active Substance: ETANERCEPT
     Indication: PSORIATIC ARTHROPATHY
     Dosage: UNK
     Route: 065

REACTIONS (8)
  - Erythema [Unknown]
  - Injection site rash [Unknown]
  - Arthropathy [Unknown]
  - Injection site erythema [Unknown]
  - Mobility decreased [Unknown]
  - Injection site warmth [Unknown]
  - Injection site pruritus [Unknown]
  - Rash pustular [Unknown]

NARRATIVE: CASE EVENT DATE: 201603
